FAERS Safety Report 4704189-6 (Version None)
Quarter: 2005Q2

REPORT INFORMATION
  Report Type: 
  Country: None (occurrence: None)
  Receive Date: 20050628
  Receipt Date: 20050623
  Transmission Date: 20051028
  Serious: Yes (Life-Threatening, Other)
  Sender: FDA-Public Use
  Company Number: USA-2005-0020318

PATIENT
  Age: 45 Year
  Sex: Male
  Weight: 87.1 kg

DRUGS (3)
  1. PALLADONE [Suspect]
     Indication: PAIN
     Dosage: UNK MG, DAILY,ORAL
     Route: 048
     Dates: start: 20050503
  2. DILAUDID [Suspect]
     Indication: PAIN
     Dosage: MG, Q12H PRN
  3. ZONEGRAN [Concomitant]

REACTIONS (4)
  - DRUG INEFFECTIVE [None]
  - INADEQUATE ANALGESIA [None]
  - INCORRECT DOSE ADMINISTERED [None]
  - SUICIDAL IDEATION [None]
